FAERS Safety Report 6241529-3 (Version None)
Quarter: 2009Q2

REPORT INFORMATION
  Report Type: 
  Country: None (occurrence: None)
  Receive Date: 20090623
  Receipt Date: 20040826
  Transmission Date: 20091009
  Serious: Yes (Hospitalization)
  Sender: FDA-Public Use
  Company Number: DE-ROCHE-372634

PATIENT
  Sex: Male
  Weight: 73 kg

DRUGS (76)
  1. DACLIZUMAB [Suspect]
     Route: 042
     Dates: start: 20040603, end: 20040603
  2. DACLIZUMAB [Suspect]
     Route: 042
     Dates: start: 20040617, end: 20040727
  3. MYCOPHENOLATE MOFETIL [Suspect]
     Dosage: DRUG: MMF
     Route: 048
     Dates: start: 20040602, end: 20040602
  4. MYCOPHENOLATE MOFETIL [Suspect]
     Route: 048
     Dates: start: 20040603
  5. MYCOPHENOLATE MOFETIL [Suspect]
     Route: 048
     Dates: start: 20040605
  6. MYCOPHENOLATE MOFETIL [Suspect]
     Route: 048
     Dates: start: 20040607, end: 20040607
  7. MYCOPHENOLATE MOFETIL [Suspect]
     Route: 048
     Dates: start: 20040607, end: 20040607
  8. MYCOPHENOLATE MOFETIL [Suspect]
     Route: 048
     Dates: start: 20040608
  9. MYCOPHENOLATE MOFETIL [Suspect]
     Route: 048
     Dates: start: 20041120, end: 20050509
  10. MYCOPHENOLATE MOFETIL [Suspect]
     Route: 048
     Dates: start: 20050602
  11. MYCOPHENOLATE MOFETIL [Suspect]
     Route: 048
     Dates: start: 20050611
  12. MYCOPHENOLATE MOFETIL [Suspect]
     Route: 048
     Dates: start: 20050625
  13. SIROLIMUS [Suspect]
     Route: 048
     Dates: start: 20040603, end: 20040603
  14. SIROLIMUS [Suspect]
     Route: 048
     Dates: start: 20040604, end: 20040604
  15. SIROLIMUS [Suspect]
     Route: 048
     Dates: start: 20040605, end: 20040605
  16. SIROLIMUS [Suspect]
     Route: 048
     Dates: start: 20040606
  17. SIROLIMUS [Suspect]
     Dosage: FORM OF SIROLIMUS INCLUDED TABLET, SUSPENSION AND SOLUTION
     Route: 048
     Dates: start: 20040622
  18. SIROLIMUS [Suspect]
     Route: 048
     Dates: start: 20040630
  19. SIROLIMUS [Suspect]
     Route: 048
     Dates: start: 20050202
  20. SIROLIMUS [Suspect]
     Route: 048
     Dates: start: 20050929
  21. SIROLIMUS [Suspect]
     Route: 048
     Dates: start: 20060308, end: 20060308
  22. SIROLIMUS [Suspect]
     Route: 048
     Dates: start: 20060309
  23. SIROLIMUS [Suspect]
     Route: 048
     Dates: start: 20060406
  24. PREDNISOLONE [Suspect]
     Route: 042
     Dates: start: 20040603
  25. PREDNISOLONE [Suspect]
     Route: 048
     Dates: start: 20040605
  26. PREDNISOLONE [Suspect]
     Route: 048
     Dates: start: 20040608, end: 20040608
  27. PREDNISOLONE [Suspect]
     Route: 048
     Dates: start: 20040609
  28. PREDNISOLONE [Suspect]
     Route: 048
     Dates: start: 20040612
  29. PREDNISOLONE [Suspect]
     Route: 048
     Dates: start: 20040615
  30. PREDNISOLONE [Suspect]
     Route: 048
     Dates: start: 20040621
  31. PREDNISOLONE [Suspect]
     Route: 048
     Dates: start: 20040623
  32. PREDNISOLONE [Suspect]
     Route: 048
     Dates: start: 20040629
  33. PREDNISOLONE [Suspect]
     Route: 048
     Dates: start: 20050509
  34. PREDNISOLONE [Suspect]
     Route: 048
     Dates: start: 20050513
  35. AMPHOTERICIN B [Concomitant]
     Route: 048
     Dates: start: 20040603, end: 20040603
  36. AMPHOTERICIN B [Concomitant]
     Route: 048
     Dates: start: 20040604, end: 20040604
  37. AMPHOTERICIN B [Concomitant]
     Route: 048
     Dates: start: 20040605, end: 20040605
  38. AMPHOTERICIN B [Concomitant]
     Route: 048
     Dates: start: 20040606, end: 20040606
  39. AMPHOTERICIN B [Concomitant]
     Route: 048
     Dates: start: 20040607, end: 20040607
  40. AMPHOTERICIN B [Concomitant]
     Route: 048
     Dates: start: 20040608, end: 20040701
  41. BISOPROLOL [Concomitant]
     Route: 048
     Dates: start: 20040601, end: 20040603
  42. BISOPROLOL [Concomitant]
     Route: 048
     Dates: start: 20040608
  43. BISOPROLOL [Concomitant]
     Route: 048
     Dates: start: 20040714
  44. BISOPROLOL [Concomitant]
     Route: 048
     Dates: start: 20050508
  45. CEFUROXIME [Concomitant]
     Route: 042
     Dates: start: 20040603, end: 20040603
  46. CEFUROXIME [Concomitant]
     Route: 042
     Dates: start: 20040604, end: 20040604
  47. CEFUROXIME [Concomitant]
     Route: 042
     Dates: start: 20040605, end: 20040605
  48. CEFUROXIME [Concomitant]
     Route: 042
     Dates: start: 20040606
  49. CEFUROXIME [Concomitant]
     Route: 042
     Dates: end: 20040613
  50. DILTIAZEM [Concomitant]
     Route: 042
     Dates: start: 20040603, end: 20040603
  51. DILTIAZEM [Concomitant]
     Route: 042
     Dates: start: 20040604, end: 20040604
  52. DILTIAZEM [Concomitant]
     Route: 042
     Dates: start: 20040605, end: 20040605
  53. DILTIAZEM [Concomitant]
     Route: 042
     Dates: start: 20040606, end: 20040606
  54. DILTIAZEM [Concomitant]
     Route: 042
     Dates: end: 20040607
  55. FUROSEMID [Concomitant]
     Route: 048
     Dates: start: 20040601, end: 20040603
  56. NITRENDIPIN [Concomitant]
     Route: 048
     Dates: start: 20040601, end: 20040603
  57. AMOXICILLIN [Concomitant]
     Route: 048
     Dates: start: 20040827, end: 20040903
  58. ATORVASTATIN CALCIUM [Concomitant]
     Route: 048
     Dates: start: 20040728, end: 20050324
  59. ATORVASTATIN CALCIUM [Concomitant]
     Route: 048
     Dates: start: 20050508, end: 20050523
  60. CANDESARTAN [Concomitant]
     Route: 048
     Dates: start: 20040617
  61. CEFTAZIDIM [Concomitant]
     Route: 042
     Dates: start: 20040624, end: 20040701
  62. CIPROFLOXACIN [Concomitant]
     Route: 048
     Dates: start: 20040811, end: 20040828
  63. COTRIM [Concomitant]
     Route: 048
     Dates: start: 20040915
  64. ENOXAPARIN SODIUM [Concomitant]
     Dosage: FORM: VIAL
     Route: 058
     Dates: start: 20040707, end: 20040805
  65. NITROFURANTOIN [Concomitant]
     Route: 048
     Dates: start: 20040818, end: 20040825
  66. ROFECOXIB [Concomitant]
     Route: 048
     Dates: start: 20040707, end: 20040711
  67. SIMVASTATIN [Concomitant]
     Route: 048
     Dates: start: 20050323, end: 20050508
  68. SIMVASTATIN [Concomitant]
     Route: 048
     Dates: start: 20050523
  69. CEFUROXIME [Concomitant]
     Route: 048
     Dates: start: 20040613, end: 20040624
  70. CEFUROXIME [Concomitant]
     Route: 048
     Dates: start: 20040723, end: 20040806
  71. CEFUROXIME [Concomitant]
     Route: 048
     Dates: start: 20050307, end: 20050415
  72. CEFUROXIME [Concomitant]
     Route: 048
     Dates: start: 20050503
  73. CEFUROXIME [Concomitant]
     Route: 048
     Dates: start: 20050601
  74. CERNEVIT-12 [Concomitant]
     Dosage: DRUG: CERNEVID
     Route: 042
     Dates: start: 20040604, end: 20040608
  75. DILTIAZEM [Concomitant]
     Route: 048
     Dates: start: 20040607
  76. VIT C [Concomitant]
     Route: 048
     Dates: start: 20040818, end: 20040824

REACTIONS (2)
  - PNEUMONIA [None]
  - POST PROCEDURAL URINE LEAK [None]
